FAERS Safety Report 12240213 (Version 1)
Quarter: 2016Q2

REPORT INFORMATION
  Report Type: Spontaneous
  Country: KR (occurrence: KR)
  Receive Date: 20160405
  Receipt Date: 20160405
  Transmission Date: 20160815
  Serious: Yes (Other)
  Sender: FDA-Public Use
  Company Number: KR-ACTAVIS-2016-06832

PATIENT
  Age: 22 Year
  Sex: Female

DRUGS (2)
  1. OXALIPLATIN (UNKNOWN) [Suspect]
     Active Substance: OXALIPLATIN
     Indication: COLON CANCER
     Dosage: 130 MG/M2, DAILY ON DAY 1 OF DAYS 1-14 EVERY 3 WEEKS
     Route: 065
  2. CAPECITABINE. [Concomitant]
     Active Substance: CAPECITABINE
     Indication: COLON CANCER
     Dosage: 1000 MG/M2, BID ON DAYS 1-14 EVERY 3 WEEKS
     Route: 065
     Dates: start: 201411

REACTIONS (1)
  - Venoocclusive liver disease [Recovered/Resolved]
